FAERS Safety Report 6686973-5 (Version None)
Quarter: 2010Q2

REPORT INFORMATION
  Report Type: 
  Country: None (occurrence: None)
  Receive Date: 20100419
  Receipt Date: 20100407
  Transmission Date: 20101027
  Serious: Yes (Other)
  Sender: FDA-Public Use
  Company Number: CA-PFIZER INC-2010043950

PATIENT
  Sex: Male

DRUGS (2)
  1. XALATAN [Suspect]
     Dosage: UNK
     Route: 047
     Dates: start: 20100301
  2. WARFARIN [Concomitant]
     Dosage: UNK

REACTIONS (1)
  - INTERNATIONAL NORMALISED RATIO ABNORMAL [None]
